FAERS Safety Report 25086299 (Version 3)
Quarter: 2025Q3

REPORT INFORMATION
  Report Type: Report from Study
  Country: JP (occurrence: JP)
  Receive Date: 20250317
  Receipt Date: 20250904
  Transmission Date: 20251020
  Serious: Yes (Hospitalization, Other)
  Sender: EISAI
  Company Number: JP-Eisai-202416288_LEQ_P_1

PATIENT
  Age: 83 Year
  Sex: Male
  Weight: 62.8 kg

DRUGS (6)
  1. LEQEMBI [Suspect]
     Active Substance: LECANEMAB-IRMB
     Indication: Cognitive disorder
     Dosage: DOSE UNKNOWN
     Route: 041
     Dates: start: 20240820, end: 20241001
  2. CRESTOR [Concomitant]
     Active Substance: ROSUVASTATIN CALCIUM
     Route: 048
  3. NU-LOTAN [Concomitant]
     Active Substance: LOSARTAN POTASSIUM
     Route: 048
  4. CILOSTAZOL [Concomitant]
     Active Substance: CILOSTAZOL
  5. EDOXABAN TOSYLATE [Concomitant]
     Active Substance: EDOXABAN TOSYLATE
  6. CILOSTAZOL [Concomitant]
     Active Substance: CILOSTAZOL
     Dates: start: 20241009, end: 20241114

REACTIONS (2)
  - Atrial fibrillation [Recovered/Resolved]
  - Lacunar infarction [Recovered/Resolved]

NARRATIVE: CASE EVENT DATE: 20241001
